FAERS Safety Report 24382521 (Version 4)
Quarter: 2025Q1

REPORT INFORMATION
  Report Type: Report from Study
  Country: CA (occurrence: CA)
  Receive Date: 20241001
  Receipt Date: 20250310
  Transmission Date: 20250409
  Serious: Yes (Other)
  Sender: TAKEDA
  Company Number: CA-TAKEDA-2020TUS022154

PATIENT
  Age: 43 Year
  Sex: Male

DRUGS (13)
  1. VEDOLIZUMAB [Suspect]
     Active Substance: VEDOLIZUMAB
     Indication: Colitis ulcerative
  2. VEDOLIZUMAB [Suspect]
     Active Substance: VEDOLIZUMAB
     Dosage: 300 MILLIGRAM, Q4WEEKS
     Dates: start: 20170301
  3. VEDOLIZUMAB [Suspect]
     Active Substance: VEDOLIZUMAB
     Dosage: 300 MILLIGRAM, Q4WEEKS
  4. VEDOLIZUMAB [Suspect]
     Active Substance: VEDOLIZUMAB
     Dosage: 300 MILLIGRAM, Q4WEEKS
  5. VEDOLIZUMAB [Suspect]
     Active Substance: VEDOLIZUMAB
     Indication: Colitis ulcerative
     Dosage: 108 MILLIGRAM, Q2WEEKS
     Dates: start: 202407
  6. PAROXETINE [Concomitant]
     Active Substance: PAROXETINE
  7. CIPROFLOXACIN [Concomitant]
     Active Substance: CIPROFLOXACIN
  8. METRONIDAZOLE [Concomitant]
     Active Substance: METRONIDAZOLE
  9. ANDROGEL [Concomitant]
     Active Substance: TESTOSTERONE
  10. ACETAMINOPHEN [Concomitant]
     Active Substance: ACETAMINOPHEN
  11. HYDROMORPHONE [Concomitant]
     Active Substance: HYDROMORPHONE
  12. TESTOSTERONE [Concomitant]
     Active Substance: TESTOSTERONE
  13. VITAMIN D3 [Concomitant]
     Active Substance: CHOLECALCIFEROL

REACTIONS (17)
  - Colitis ulcerative [Unknown]
  - Post procedural sepsis [Unknown]
  - Postoperative abscess [Unknown]
  - Gastrointestinal anastomotic stenosis [Unknown]
  - Nephrolithiasis [Unknown]
  - Abdominal adhesions [Unknown]
  - Rectal lesion [Unknown]
  - Product dose omission issue [Unknown]
  - Off label use [Unknown]
  - Gastrointestinal stoma output decreased [Unknown]
  - Intestinal anastomosis complication [Unknown]
  - Flatulence [Unknown]
  - Arthralgia [Unknown]
  - Haematuria [Unknown]
  - Anxiety [Unknown]
  - Depression [Unknown]
  - Blood glucose increased [Unknown]

NARRATIVE: CASE EVENT DATE: 20170301
